FAERS Safety Report 5165502-1 (Version None)
Quarter: 2006Q4

REPORT INFORMATION
  Report Type: 
  Country: None (occurrence: None)
  Receive Date: 20061128
  Receipt Date: 20061113
  Transmission Date: 20070319
  Serious: Yes (Other)
  Sender: FDA-Public Use
  Company Number: 2006-149742-NL

PATIENT
  Age: 31 Year
  Sex: Female

DRUGS (3)
  1. FOLLITROPIN BETA [Suspect]
  2. CHORIONIC GONADORTOPIN INJ [Suspect]
     Dosage: 10000 IU ONCE
  3. BUSERELIN ACETATE [Suspect]
     Dosage: DF

REACTIONS (1)
  - ECTOPIC PREGNANCY [None]
